FAERS Safety Report 14197677 (Version 1)
Quarter: 2017Q4

REPORT INFORMATION
  Report Type: Spontaneous
  Country: US (occurrence: US)
  Receive Date: 20171116
  Receipt Date: 20171116
  Transmission Date: 20180321
  Serious: No
  Sender: FDA-Public Use
  Company Number: US-BAUSCH-BL-2017-003663

PATIENT
  Sex: Female

DRUGS (1)
  1. NIFEDICAL XL [Suspect]
     Active Substance: NIFEDIPINE
     Indication: PRODUCT USED FOR UNKNOWN INDICATION
     Route: 065
     Dates: end: 20160830

REACTIONS (7)
  - Hypoaesthesia [Recovered/Resolved]
  - Product colour issue [Unknown]
  - Muscle tightness [Recovered/Resolved]
  - Wrong drug administered [Unknown]
  - Chest pain [Recovered/Resolved]
  - Paraesthesia [Recovered/Resolved]
  - Drug ineffective [Unknown]
